FAERS Safety Report 14335837 (Version 1)
Quarter: 2017Q4

REPORT INFORMATION
  Report Type: Spontaneous
  Country: CN (occurrence: CN)
  Receive Date: 20171229
  Receipt Date: 20171229
  Transmission Date: 20180321
  Serious: Yes (Death, Life-Threatening, Hospitalization, Other)
  Sender: FDA-Public Use
  Company Number: CN-STRIDES ARCOLAB LIMITED-2017SP014994

PATIENT
  Age: 72 Year
  Sex: Female

DRUGS (6)
  1. CEFTRIAXONE. [Suspect]
     Active Substance: CEFTRIAXONE
     Indication: HYPERPYREXIA
     Dosage: UNKNOWN
     Route: 065
  2. IMIPENEM [Suspect]
     Active Substance: IMIPENEM
     Indication: SEPSIS
     Dosage: UNKNOWN
     Route: 065
  3. CARBAPENEMS [Suspect]
     Active Substance: UNSPECIFIED INGREDIENT
     Indication: HYPERPYREXIA
     Dosage: UNKNOWN
     Route: 005
  4. VANCOMYCIN [Suspect]
     Active Substance: VANCOMYCIN
     Indication: SEPSIS
     Dosage: UNKNOWN
     Route: 042
  5. TIGECYCLINE. [Suspect]
     Active Substance: TIGECYCLINE
     Indication: ACINETOBACTER INFECTION
     Dosage: UNKNOWN
     Route: 065
  6. INSULIN [Concomitant]
     Active Substance: INSULIN NOS
     Indication: HYPERGLYCAEMIA
     Dosage: UNKNOWN
     Route: 065

REACTIONS (9)
  - Mental status changes [Recovered/Resolved]
  - Acinetobacter infection [Recovered/Resolved]
  - Cerebral aspergillosis [Fatal]
  - Pancreatitis necrotising [Recovered/Resolved]
  - Pathogen resistance [Unknown]
  - Brain abscess [Recovered/Resolved]
  - Chills [Recovered/Resolved]
  - Pyrexia [Recovered/Resolved]
  - Seizure [Recovered/Resolved]
